FAERS Safety Report 4859651-2 (Version None)
Quarter: 2005Q4

REPORT INFORMATION
  Report Type: 
  Country: None (occurrence: None)
  Receive Date: 20051219
  Receipt Date: 20051209
  Transmission Date: 20060501
  Serious: Yes (Life-Threatening, Other)
  Sender: FDA-Public Use
  Company Number: 2005AP06380

PATIENT
  Age: 20368 Day
  Sex: Male

DRUGS (19)
  1. IRESSA [Suspect]
     Indication: OROPHARYNGEAL CANCER STAGE UNSPECIFIED
     Route: 048
     Dates: start: 20051014, end: 20051203
  2. CISPLATIN [Suspect]
     Indication: OROPHARYNGEAL CANCER STAGE UNSPECIFIED
     Route: 042
     Dates: start: 20051024
  3. CISPLATIN [Suspect]
     Route: 042
     Dates: start: 20051114
  4. RADIOTHERAPY [Suspect]
     Indication: OROPHARYNGEAL CANCER STAGE UNSPECIFIED
     Dosage: 2 GY
     Dates: start: 20051024, end: 20051028
  5. RADIOTHERAPY [Suspect]
     Dosage: 2 GY
     Dates: start: 20051031, end: 20051104
  6. RADIOTHERAPY [Suspect]
     Dosage: 2 GY NOT GIVEN 11 NOV 2005 DUE TO BANK HOLIDAY
     Dates: start: 20051107, end: 20051110
  7. RADIOTHERAPY [Suspect]
     Dosage: 2 GY
     Dates: start: 20051114, end: 20051118
  8. RADIOTHERAPY [Suspect]
     Dosage: 2 GY
     Dates: start: 20051121, end: 20051125
  9. RADIOTHERAPY [Suspect]
     Dosage: 2 GY
     Dates: start: 20051128, end: 20051202
  10. FUROSEMIDUM [Concomitant]
     Indication: RENAL FUNCTION TEST
     Route: 042
     Dates: start: 20051104
  11. DOXYCILIN [Concomitant]
     Indication: ACNE
     Route: 048
     Dates: start: 20051110, end: 20051116
  12. LOPERAMIDE [Concomitant]
     Indication: DIARRHOEA
     Route: 048
     Dates: start: 20051118
  13. LACCID [Concomitant]
     Indication: ANTIBIOTIC PROPHYLAXIS
     Route: 048
     Dates: start: 20051118
  14. BROMHEXINE HYDROCHLORIDE [Concomitant]
     Indication: COUGH
     Route: 048
     Dates: start: 20051102, end: 20051107
  15. ZYRTEC [Concomitant]
     Indication: HYPERSENSITIVITY
     Route: 048
     Dates: start: 20051102, end: 20051122
  16. RINGER SOLUTION [Concomitant]
     Indication: DYSPHAGIA
     Route: 042
     Dates: start: 20051104
  17. DEXTROSE 5% [Concomitant]
     Indication: DYSPHAGIA
     Route: 042
     Dates: start: 20051104
  18. THIETHYLPERAZINE [Concomitant]
     Indication: NAUSEA
     Route: 030
     Dates: start: 20051118
  19. THIETHYLPERAZINE [Concomitant]
     Indication: VOMITING
     Route: 030
     Dates: start: 20051118

REACTIONS (2)
  - AZOTAEMIA [None]
  - GENERAL PHYSICAL HEALTH DETERIORATION [None]
